FAERS Safety Report 9245434 (Version 2)
Quarter: 2013Q2

REPORT INFORMATION
  Report Type: Report from Study
  Country: US (occurrence: US)
  Receive Date: 20130422
  Receipt Date: 20130424
  Transmission Date: 20140414
  Serious: No
  Sender: FDA-Public Use
  Company Number: US-VERTEX PHARMACEUTICALS INC.-2013-005137

PATIENT
  Age: 63 Year
  Sex: Male
  Weight: 85 kg

DRUGS (8)
  1. VX-950 (TELAPREVIR) [Suspect]
     Indication: HEPATITIS C
     Dosage: 750 MG, TID
     Route: 048
     Dates: start: 2013
  2. PEGASYS [Suspect]
     Indication: HEPATITIS C
     Dosage: 180 ?G, QW
     Route: 058
     Dates: start: 2013
  3. RIBAPAK [Suspect]
     Indication: HEPATITIS C
     Dosage: 600 MG, BID
     Route: 048
     Dates: start: 2013
  4. PROBIOTIC [Concomitant]
     Dosage: UNK, QD
  5. DESOXIMETASONE [Concomitant]
     Dosage: UNK, PRN
  6. PATANASE [Concomitant]
  7. COMBIGAN D [Concomitant]
     Dosage: UNK, BID
  8. LATANOPROST [Concomitant]

REACTIONS (6)
  - Flank pain [Unknown]
  - Decreased appetite [Unknown]
  - Diarrhoea [Not Recovered/Not Resolved]
  - Anorectal discomfort [Unknown]
  - Nausea [Unknown]
  - Dysgeusia [Unknown]
